FAERS Safety Report 22378289 (Version 1)
Quarter: 2023Q2

REPORT INFORMATION
  Report Type: Report from Study
  Country: US (occurrence: None)
  Receive Date: 20230529
  Receipt Date: 20230529
  Transmission Date: 20230722
  Serious: Yes (Other)
  Sender: FDA-Public Use
  Company Number: US-ROCHE-3356724

PATIENT
  Age: 55 Year
  Sex: Male
  Weight: 124.4 kg

DRUGS (2)
  1. OBINUTUZUMAB [Suspect]
     Active Substance: OBINUTUZUMAB
     Indication: Chronic lymphocytic leukaemia
     Dosage: ON 28/JUL/2020 RECEIVED LAST DOSE OF OBINUTUZUMAB
     Route: 042
     Dates: start: 20200309, end: 20200728
  2. VENETOCLAX [Suspect]
     Active Substance: VENETOCLAX
     Indication: Chronic lymphocytic leukaemia
     Dosage: ON 16/MAY/2023 RECIEVED LAST DOSE OF VENETOCLAX.
     Route: 065
     Dates: start: 20200309

REACTIONS (1)
  - Second primary malignancy [Not Recovered/Not Resolved]

NARRATIVE: CASE EVENT DATE: 20230505
